FAERS Safety Report 7791948-9 (Version None)
Quarter: 2011Q4

REPORT INFORMATION
  Report Type: 
  Country: None (occurrence: None)
  Receive Date: 20111003
  Receipt Date: 20110924
  Transmission Date: 20120403
  Serious: Yes (Other)
  Sender: FDA-Public Use
  Company Number: US-JNJFOC-20110911019

PATIENT
  Sex: Female
  Weight: 102.06 kg

DRUGS (4)
  1. PROPRANOLOL [Concomitant]
     Indication: HYPERTENSION
     Route: 065
  2. IMODIUM MULTI-SYMPTOM RELIEF [Suspect]
     Indication: IRRITABLE BOWEL SYNDROME
     Dosage: 1 CAPLET DAILY IN THE MORNING
     Route: 065
  3. IMODIUM MULTI-SYMPTOM RELIEF [Suspect]
     Route: 065
  4. UNSPECIFIED CREAMS NOS [Concomitant]
     Indication: SKIN IRRITATION
     Route: 065

REACTIONS (9)
  - WEIGHT DECREASED [None]
  - MALAISE [None]
  - ANXIETY [None]
  - ABDOMINAL PAIN UPPER [None]
  - NAUSEA [None]
  - CYSTITIS [None]
  - ATRIAL FIBRILLATION [None]
  - OBSESSIVE-COMPULSIVE DISORDER [None]
  - APPETITE DISORDER [None]
